FAERS Safety Report 8341942-4 (Version None)
Quarter: 2012Q2

REPORT INFORMATION
  Report Type: 
  Country: None (occurrence: None)
  Receive Date: 20120503
  Receipt Date: 20120419
  Transmission Date: 20120825
  Serious: Yes (Other)
  Sender: FDA-Public Use
  Company Number: JPI-P-021028

PATIENT
  Age: 58 Year
  Sex: Female
  Weight: 117.9352 kg

DRUGS (15)
  1. XYREM [Suspect]
     Indication: NARCOLEPSY
     Dosage: 4.5 GM (2.25 GM, 2 IN 1 D), ORAL, (UNSPECIFIED DOSE CHANGE), ORAL, 3 GM (1.5 GM, 2 IN 1 D), ORAL
     Route: 048
     Dates: start: 20120101, end: 20120101
  2. XYREM [Suspect]
     Indication: NARCOLEPSY
     Dosage: 4.5 GM (2.25 GM, 2 IN 1 D), ORAL, (UNSPECIFIED DOSE CHANGE), ORAL, 3 GM (1.5 GM, 2 IN 1 D), ORAL
     Route: 048
     Dates: start: 20120101
  3. XYREM [Suspect]
     Indication: NARCOLEPSY
     Dosage: 4.5 GM (2.25 GM, 2 IN 1 D), ORAL, (UNSPECIFIED DOSE CHANGE), ORAL, 3 GM (1.5 GM, 2 IN 1 D), ORAL
     Route: 048
     Dates: start: 20120215, end: 20120101
  4. CITALOPRAM HYDROBROMIDE [Concomitant]
  5. BENAZEPRIL HCTZ [Concomitant]
  6. ROSUVASTATIN CALCIUM [Concomitant]
  7. PREDNISONE TAB [Concomitant]
  8. B2 [Concomitant]
  9. VITAMIN D [Concomitant]
  10. FOLIC ACID [Concomitant]
  11. MAGNESIUM OXIDE [Concomitant]
  12. COLCHICINE [Concomitant]
  13. METHOTREXATE [Concomitant]
  14. VITAMIN B-12 [Concomitant]
  15. GABAPENTIN [Concomitant]

REACTIONS (6)
  - FOOT FRACTURE [None]
  - FALL [None]
  - FATIGUE [None]
  - ANKLE FRACTURE [None]
  - SOMNOLENCE [None]
  - BALANCE DISORDER [None]
